FAERS Safety Report 19879171 (Version 1)
Quarter: 2021Q3

REPORT INFORMATION
  Report Type: Spontaneous
  Country: FR (occurrence: FR)
  Receive Date: 20210924
  Receipt Date: 20210924
  Transmission Date: 20211014
  Serious: Yes (Congenital Anomaly, Other)
  Sender: FDA-Public Use
  Company Number: FR-ABBVIE-21K-056-4089244-00

PATIENT
  Sex: Female

DRUGS (3)
  1. DEPAKINE CHRONO [Suspect]
     Active Substance: VALPROATE SODIUM
     Indication: MATERNAL EXPOSURE TIMING UNSPECIFIED
     Route: 064
  2. VITAMIN K [Concomitant]
     Active Substance: PHYTONADIONE
     Indication: PRODUCT USED FOR UNKNOWN INDICATION
  3. SPECIAFOLDINE [Concomitant]
     Active Substance: FOLIC ACID
     Indication: PRODUCT USED FOR UNKNOWN INDICATION

REACTIONS (55)
  - Palpitations [Recovered/Resolved]
  - Executive dysfunction [Unknown]
  - Foot deformity [Unknown]
  - Muscle disorder [Unknown]
  - Ophthalmic migraine [Unknown]
  - Lordosis [Unknown]
  - Psychomotor skills impaired [Unknown]
  - Cognitive disorder [Unknown]
  - Eczema [Recovered/Resolved]
  - Myopia [Unknown]
  - Tachycardia [Unknown]
  - Congenital hair disorder [Unknown]
  - Spinal pain [Recovered/Resolved]
  - Congenital knee deformity [Unknown]
  - Food allergy [Unknown]
  - Patellofemoral pain syndrome [Unknown]
  - High arched palate [Unknown]
  - Desmoid tumour [Unknown]
  - Memory impairment [Unknown]
  - Spinal pain [Unknown]
  - Unevaluable event [Unknown]
  - Mite allergy [Unknown]
  - Body height abnormal [Unknown]
  - Learning disorder [Unknown]
  - Learning disability [Unknown]
  - Fall [Unknown]
  - Prognathism [Unknown]
  - Hypermobility syndrome [Unknown]
  - Hypertonia [Unknown]
  - Eyelid disorder [Unknown]
  - Knee deformity [Unknown]
  - Joint hyperextension [Unknown]
  - Retinal tear [Unknown]
  - Gastrooesophageal reflux disease [Unknown]
  - Penis frenulectomy [Unknown]
  - Speech disorder developmental [Unknown]
  - Skin malformation [Unknown]
  - Chalazion [Unknown]
  - Spinal disorder [Unknown]
  - Knee deformity [Unknown]
  - Psychiatric symptom [Unknown]
  - Foetal exposure during pregnancy [Unknown]
  - Joint instability [Unknown]
  - Joint dislocation [Unknown]
  - Patellofemoral pain syndrome [Unknown]
  - Dyscalculia [Unknown]
  - Disturbance in attention [Unknown]
  - Bone disorder [Unknown]
  - Astigmatism [Unknown]
  - Dermatitis atopic [Unknown]
  - Scapular dyskinesis [Unknown]
  - Trochlear dysplasia [Unknown]
  - Arthralgia [Unknown]
  - Clumsiness [Unknown]
  - Dysphagia [Unknown]

NARRATIVE: CASE EVENT DATE: 200211
